FAERS Safety Report 10101789 (Version 3)
Quarter: 2014Q3

REPORT INFORMATION
  Report Type: Report from Study
  Country: CA (occurrence: CA)
  Receive Date: 20140424
  Receipt Date: 20140804
  Transmission Date: 20150326
  Serious: Yes (Hospitalization)
  Sender: FDA-Public Use
  Company Number: PHHY2014CA048128

PATIENT
  Age: 48 Year
  Sex: Female

DRUGS (1)
  1. GILENYA [Suspect]
     Active Substance: FINGOLIMOD HYDROCHLORIDE
     Indication: RELAPSING-REMITTING MULTIPLE SCLEROSIS
     Dosage: 0.5 MG, QD
     Route: 048
     Dates: start: 20131109, end: 20140122

REACTIONS (15)
  - Central nervous system lesion [Unknown]
  - Malaise [Unknown]
  - Hypoaesthesia [Recovering/Resolving]
  - Incontinence [Recovering/Resolving]
  - Alopecia [Unknown]
  - Cognitive disorder [Recovering/Resolving]
  - Dysgraphia [Recovering/Resolving]
  - Tension headache [Unknown]
  - Muscle spasticity [Recovering/Resolving]
  - Rebound effect [Recovering/Resolving]
  - Ataxia [Recovering/Resolving]
  - Asthenia [Recovering/Resolving]
  - Gait disturbance [Recovering/Resolving]
  - Migraine [Unknown]
  - Reading disorder [Recovering/Resolving]

NARRATIVE: CASE EVENT DATE: 20131110
